FAERS Safety Report 9018077 (Version 1)
Quarter: 2013Q1

REPORT INFORMATION
  Report Type: Spontaneous
  Country: BR (occurrence: BR)
  Receive Date: 20130117
  Receipt Date: 20130117
  Transmission Date: 20140127
  Serious: Yes (Other)
  Sender: FDA-Public Use
  Company Number: PHHY2013BR002394

PATIENT
  Age: 91 Year
  Sex: Female

DRUGS (5)
  1. ANAFRANIL [Suspect]
     Indication: DECREASED APPETITE
     Dosage: 4 DF DAILY FIRST DAY
     Route: 048
     Dates: start: 2005
  2. ANAFRANIL [Suspect]
     Indication: ABNORMAL BEHAVIOUR
     Dosage: 3 DF DAILY SECOND DAY
     Route: 048
     Dates: start: 2005
  3. ANAFRANIL [Suspect]
     Dosage: 2 DF DAILY THIRD DAY
     Route: 048
     Dates: start: 2005
  4. RISPERIDONE [Suspect]
     Indication: DEMENTIA
     Dosage: 1 DF DAILY
     Route: 048
     Dates: start: 2002
  5. RISPERIDONE [Suspect]
     Indication: MANIA

REACTIONS (3)
  - Apathy [Recovered/Resolved]
  - Delirium [Recovered/Resolved]
  - Drug dependence [Unknown]
